FAERS Safety Report 5781156-5 (Version None)
Quarter: 2008Q2

REPORT INFORMATION
  Report Type: 
  Country: None (occurrence: None)
  Receive Date: 20080618
  Receipt Date: 20080609
  Transmission Date: 20081010
  Serious: Yes (Other)
  Sender: FDA-Public Use
  Company Number: 029157

PATIENT
  Age: 29 Year
  Sex: Male

DRUGS (2)
  1. FLUOXETINE [Suspect]
     Indication: ADJUSTMENT DISORDER WITH ANXIETY
     Dosage: 20 MG; 40 MG, QD
  2. FLUOXETINE [Suspect]
     Indication: ADJUSTMENT DISORDER WITH ANXIETY
     Dosage: 20 MG; 40 MG, QD

REACTIONS (7)
  - AMNESIA [None]
  - DRUG INEFFECTIVE [None]
  - EJACULATION FAILURE [None]
  - ERECTILE DYSFUNCTION [None]
  - SEXUAL DYSFUNCTION [None]
  - SOMNOLENCE [None]
  - WEIGHT DECREASED [None]
